FAERS Safety Report 21137138 (Version 1)
Quarter: 2022Q3

REPORT INFORMATION
  Report Type: Spontaneous
  Country: JP (occurrence: JP)
  Receive Date: 20220727
  Receipt Date: 20220727
  Transmission Date: 20221027
  Serious: Yes (Death, Other)
  Sender: FDA-Public Use
  Company Number: JP-SLATE RUN PHARMACEUTICALS-22JP001225

PATIENT

DRUGS (5)
  1. EPLERENONE [Suspect]
     Active Substance: EPLERENONE
     Indication: Cardiovascular event prophylaxis
     Dosage: UNK
  2. CARVEDILOL [Suspect]
     Active Substance: CARVEDILOL
     Indication: Cardiovascular event prophylaxis
     Dosage: UNK
  3. CANDESARTAN [Suspect]
     Active Substance: CANDESARTAN
     Indication: Cardiovascular event prophylaxis
     Dosage: UNK
  4. DAPAGLIFLOZIN [Suspect]
     Active Substance: DAPAGLIFLOZIN
     Indication: Cardiovascular event prophylaxis
     Dosage: UNK
  5. IVABRADINE [Suspect]
     Active Substance: IVABRADINE
     Indication: Cardiovascular event prophylaxis
     Dosage: UNK

REACTIONS (4)
  - Cardiac failure [Fatal]
  - Myocardial fibrosis [Unknown]
  - Urinary tract infection [Unknown]
  - Treatment failure [Unknown]
